FAERS Safety Report 22180243 (Version 1)
Quarter: 2023Q2

REPORT INFORMATION
  Report Type: Spontaneous
  Country: ES (occurrence: ES)
  Receive Date: 20230406
  Receipt Date: 20230406
  Transmission Date: 20230722
  Serious: Yes (Other)
  Sender: FDA-Public Use
  Company Number: ES-AEMPS-649694

PATIENT
  Age: 84 Year
  Sex: Male
  Weight: 65 kg

DRUGS (5)
  1. VALACYCLOVIR HYDROCHLORIDE [Suspect]
     Active Substance: VALACYCLOVIR HYDROCHLORIDE
     Indication: Herpes zoster reactivation
     Dosage: 1000 MILLIGRAM, ONCE A DAY
     Route: 048
     Dates: start: 20190607, end: 20190814
  2. IBRUTINIB [Concomitant]
     Active Substance: IBRUTINIB
     Indication: Chronic lymphocytic leukaemia
     Dosage: 420 MILLIGRAM, ONCE A DAY
     Route: 048
     Dates: start: 20181212, end: 20190319
  3. IBRUTINIB [Concomitant]
     Active Substance: IBRUTINIB
     Dosage: 280 MILLIGRAM, ONCE A DAY
     Route: 048
     Dates: start: 20190319, end: 20190529
  4. IBRUTINIB [Concomitant]
     Active Substance: IBRUTINIB
     Dosage: 280 MILLIGRAM, ONCE A DAY
     Route: 048
     Dates: start: 20190627, end: 20190814
  5. VALACYCLOVIR HYDROCHLORIDE [Concomitant]
     Active Substance: VALACYCLOVIR HYDROCHLORIDE
     Indication: Herpes zoster
     Dosage: 1000 MILLIGRAM, ONCE A DAY
     Route: 048
     Dates: start: 20190226, end: 20190529

REACTIONS (1)
  - Hepatitis acute [Recovered/Resolved]

NARRATIVE: CASE EVENT DATE: 20190814
